FAERS Safety Report 4640417-3 (Version None)
Quarter: 2005Q2

REPORT INFORMATION
  Report Type: 
  Country: None (occurrence: None)
  Receive Date: 20050420
  Receipt Date: 20050114
  Transmission Date: 20051028
  Serious: Yes (Other)
  Sender: FDA-Public Use
  Company Number: US-SANOFI-SYNTHELABO-A03200500126

PATIENT
  Sex: Male

DRUGS (3)
  1. ELOXATIN [Suspect]
     Indication: COLON CANCER
     Route: 042
     Dates: start: 20050114, end: 20050114
  2. ZOFRAN [Concomitant]
     Route: 042
     Dates: start: 20050114
  3. DECADRON [Concomitant]
     Route: 042
     Dates: start: 20050114

REACTIONS (4)
  - CONVULSION [None]
  - DYSKINESIA [None]
  - INCONTINENCE [None]
  - LOSS OF CONSCIOUSNESS [None]
